FAERS Safety Report 5209750-0 (Version None)
Quarter: 2006Q4

REPORT INFORMATION
  Report Type: 
  Country: None (occurrence: None)
  Receive Date: 20061116
  Receipt Date: 20060411
  Transmission Date: 20070319
  Serious: Yes (Other)
  Sender: FDA-Public Use
  Company Number: 26699

PATIENT
  Sex: Male
  Weight: 111.1313 kg

DRUGS (9)
  1. CISPLATIN [Suspect]
     Indication: OESOPHAGEAL CARCINOMA
     Dosage: 115MG DAY AND DAY 29 OF 6 W
     Dates: start: 20060321
  2. CISPLATIN [Suspect]
     Indication: OESOPHAGEAL CARCINOMA
     Dosage: 115MG DAY AND DAY 29 OF 6 W
     Dates: start: 20060411
  3. SOLU-MEDROL [Concomitant]
  4. BENADRYL [Concomitant]
  5. TAGAMET [Concomitant]
  6. DECADRON [Concomitant]
  7. ATIVAN [Concomitant]
  8. FLUOROURACIL [Concomitant]
  9. LEUCOVORIN CALCIUM [Concomitant]

REACTIONS (1)
  - FLUSHING [None]
